APPROVED DRUG PRODUCT: PEPTAVLON
Active Ingredient: PENTAGASTRIN
Strength: 0.25MG/ML **Federal Register determination that product was not discontinued or withdrawn for safety or effectiveness reasons**
Dosage Form/Route: INJECTABLE;INJECTION
Application: N017048 | Product #001
Applicant: WYETH AYERST LABORATORIES
Approved: Approved Prior to Jan 1, 1982 | RLD: Yes | RS: No | Type: DISCN